FAERS Safety Report 17403242 (Version 1)
Quarter: 2020Q1

REPORT INFORMATION
  Report Type: Spontaneous
  Country: US (occurrence: US)
  Receive Date: 20200211
  Receipt Date: 20200211
  Transmission Date: 20200409
  Serious: No
  Sender: FDA-Public Use
  Company Number: US-UPSHER-SMITH LABORATORIES, LLC-2019USL00885

PATIENT
  Age: 51 Year
  Sex: Female
  Weight: 77.1 kg

DRUGS (2)
  1. AJOVY [Concomitant]
     Active Substance: FREMANEZUMAB-VFRM
     Dosage: UNK, 1X/MONTH
     Dates: start: 201910
  2. TOSYMRA [Suspect]
     Active Substance: SUMATRIPTAN
     Indication: HEADACHE
     Dosage: 10 MG
     Route: 045
     Dates: start: 20191130, end: 20191130

REACTIONS (2)
  - Headache [Recovered/Resolved]
  - Nasal discomfort [Recovering/Resolving]

NARRATIVE: CASE EVENT DATE: 20191130
